FAERS Safety Report 25731086 (Version 2)
Quarter: 2025Q4

REPORT INFORMATION
  Report Type: Report from Study
  Country: US (occurrence: US)
  Receive Date: 20250827
  Receipt Date: 20251007
  Transmission Date: 20260118
  Serious: Yes (Other)
  Sender: MALLINCKRODT
  Company Number: US-MALLINCKRODT-MNK202505132

PATIENT
  Age: 65 Year
  Sex: Female

DRUGS (2)
  1. CORTICOTROPIN [Suspect]
     Active Substance: CORTICOTROPIN
     Indication: Rheumatoid arthritis
     Dosage: UNKNOWN
  2. TYLENOL [Suspect]
     Active Substance: ACETAMINOPHEN
     Indication: Rheumatoid arthritis
     Dosage: 2 DOSES

REACTIONS (12)
  - Rheumatoid arthritis [Unknown]
  - Renal failure [Unknown]
  - Fall [Unknown]
  - Arthralgia [Unknown]
  - Fear [Unknown]
  - Injury [Unknown]
  - Stomatitis [Unknown]
  - Nervousness [Unknown]
  - Memory impairment [Unknown]
  - Vitamin B12 decreased [Unknown]
  - White blood cell count decreased [Unknown]
  - Insomnia [Unknown]

NARRATIVE: CASE EVENT DATE: 20250920
